FAERS Safety Report 11054651 (Version 1)
Quarter: 2015Q2

REPORT INFORMATION
  Report Type: Spontaneous
  Country: US (occurrence: US)
  Receive Date: 20150422
  Receipt Date: 20150422
  Transmission Date: 20150821
  Serious: Yes (Death, Hospitalization)
  Sender: FDA-Public Use
  Company Number: US-JNJFOC-2002127316US

PATIENT
  Age: 16 Year
  Sex: Male

DRUGS (3)
  1. ASPIRIN. [Suspect]
     Active Substance: ASPIRIN
     Indication: COMPLETED SUICIDE
     Route: 048
  2. UNSPECIFIED IBUPROFEN PRODUCT [Suspect]
     Active Substance: IBUPROFEN
     Indication: COMPLETED SUICIDE
     Route: 065
  3. EXCEDRIN PM [Suspect]
     Active Substance: ACETAMINOPHEN\DIPHENHYDRAMINE\DIPHENHYDRAMINE CITRATE
     Indication: COMPLETED SUICIDE
     Route: 048

REACTIONS (8)
  - Overdose [Fatal]
  - Apnoea [Fatal]
  - Tachycardia [Fatal]
  - Pyrexia [Fatal]
  - Stupor [Fatal]
  - Suicide attempt [Fatal]
  - Seizure [Fatal]
  - Hypotension [Fatal]
